FAERS Safety Report 25109425 (Version 1)
Quarter: 2025Q1

REPORT INFORMATION
  Report Type: Spontaneous
  Country: US (occurrence: US)
  Receive Date: 20250323
  Receipt Date: 20250323
  Transmission Date: 20250409
  Serious: No
  Sender: ABBVIE
  Company Number: US-ABBVIE-6183429

PATIENT
  Sex: Male

DRUGS (1)
  1. RISANKIZUMAB [Suspect]
     Active Substance: RISANKIZUMAB
     Indication: Psoriasis
     Route: 058

REACTIONS (3)
  - Arthralgia [Not Recovered/Not Resolved]
  - Psoriasis [Not Recovered/Not Resolved]
  - Therapeutic product effect incomplete [Not Recovered/Not Resolved]
